FAERS Safety Report 16208790 (Version 1)
Quarter: 2019Q2

REPORT INFORMATION
  Report Type: Spontaneous
  Country: US (occurrence: US)
  Receive Date: 20190417
  Receipt Date: 20190417
  Transmission Date: 20190711
  Serious: No
  Sender: FDA-Public Use
  Company Number: US-B.I. PHARMACEUTICALS,INC./RIDGEFIELD-2019-BI-016969

PATIENT
  Sex: Female

DRUGS (1)
  1. SPIRIVA [Suspect]
     Active Substance: TIOTROPIUM BROMIDE MONOHYDRATE
     Indication: PRODUCT USED FOR UNKNOWN INDICATION
     Dosage: INHALE CONTENTS OF 1 CAPSULE ONCE A DAY;  18 MCG; CAPSULE? NR(NOT REPORTED) DOSE NOT CHANGED
     Route: 055
     Dates: start: 201902

REACTIONS (2)
  - Fall [Recovered/Resolved]
  - Hand fracture [Unknown]
